FAERS Safety Report 6170207-4 (Version None)
Quarter: 2009Q2

REPORT INFORMATION
  Report Type: 
  Country: None (occurrence: None)
  Receive Date: 20090428
  Receipt Date: 20090422
  Transmission Date: 20091009
  Serious: Yes (Hospitalization)
  Sender: FDA-Public Use
  Company Number: PHHY2009JP11582

PATIENT
  Sex: Male

DRUGS (3)
  1. DIOVAN T30230+TAB+HY [Suspect]
     Indication: HYPERTENSION
     Dosage: 80 MG, QD
     Route: 048
     Dates: start: 20080123, end: 20080930
  2. TENORMIN [Concomitant]
     Indication: HYPERTENSION
     Dosage: 25 MG
     Route: 048
     Dates: start: 20080123, end: 20080930
  3. LIVALO KOWA [Concomitant]
     Dosage: 2 MG
     Route: 048
     Dates: start: 20061025, end: 20080930

REACTIONS (2)
  - HEADACHE [None]
  - INTRACRANIAL HYPOTENSION [None]
